FAERS Safety Report 21137824 (Version 1)
Quarter: 2022Q3

REPORT INFORMATION
  Report Type: Spontaneous
  Country: GB (occurrence: GB)
  Receive Date: 20220727
  Receipt Date: 20220727
  Transmission Date: 20221027
  Serious: No
  Sender: FDA-Public Use
  Company Number: None

PATIENT
  Age: 79 Year
  Sex: Female
  Weight: 67 kg

DRUGS (2)
  1. PAXLOVID [Suspect]
     Active Substance: NIRMATRELVIR\RITONAVIR
     Indication: Coronavirus infection
     Dosage: 30 MG
     Dates: start: 20220711
  2. ESTRADIOL [Concomitant]
     Active Substance: ESTRADIOL
     Indication: Depression
     Dosage: UNK

REACTIONS (7)
  - Diarrhoea [Recovered/Resolved]
  - Constipation [Recovered/Resolved]
  - Dysgeusia [Recovered/Resolved]
  - Proctalgia [Recovered/Resolved]
  - Dyschezia [Recovered/Resolved]
  - Sleep disorder [Unknown]
  - Incorrect dose administered [Unknown]

NARRATIVE: CASE EVENT DATE: 20220711
